FAERS Safety Report 15021713 (Version 1)
Quarter: 2018Q2

REPORT INFORMATION
  Report Type: Spontaneous
  Country: US (occurrence: US)
  Receive Date: 20180618
  Receipt Date: 20180618
  Transmission Date: 20180711
  Serious: No
  Sender: FDA-Public Use
  Company Number: US-GLAXOSMITHKLINE-US2018103019

PATIENT
  Age: 60 Year
  Sex: Female

DRUGS (1)
  1. EQUATE NICOTINE [Suspect]
     Active Substance: NICOTINE
     Indication: SMOKING CESSATION THERAPY
     Dosage: 21 UNK, UNK

REACTIONS (6)
  - Application site erythema [Unknown]
  - Hypersensitivity [Unknown]
  - Application site urticaria [Unknown]
  - Application site pruritus [Unknown]
  - Application site rash [Unknown]
  - Application site swelling [Unknown]

NARRATIVE: CASE EVENT DATE: 20180607
